FAERS Safety Report 7713630-6 (Version None)
Quarter: 2011Q3

REPORT INFORMATION
  Report Type: 
  Country: None (occurrence: None)
  Receive Date: 20110826
  Receipt Date: 20110818
  Transmission Date: 20111222
  Serious: Yes (Hospitalization)
  Sender: FDA-Public Use
  Company Number: PHHY2011FR74464

PATIENT
  Sex: Female

DRUGS (5)
  1. ISOPTIN [Concomitant]
     Dosage: 40 MG, UNK
  2. NEXIUM [Concomitant]
  3. TARGOCID [Suspect]
     Dosage: 600 MG, QD
     Route: 042
     Dates: start: 20100805, end: 20100801
  4. TARGOCID [Suspect]
     Dosage: 300 MG, QD
     Route: 042
     Dates: end: 20100801
  5. RIFAMPICIN [Suspect]
     Route: 048
     Dates: start: 20100805, end: 20100816

REACTIONS (5)
  - PYREXIA [None]
  - RASH MACULO-PAPULAR [None]
  - PANCYTOPENIA [None]
  - NEUTROPENIA [None]
  - THROMBOCYTOPENIA [None]
